FAERS Safety Report 20265588 (Version 1)
Quarter: 2021Q4

REPORT INFORMATION
  Report Type: Spontaneous
  Country: US (occurrence: None)
  Receive Date: 20211230
  Receipt Date: 20211230
  Transmission Date: 20220303
  Serious: No
  Sender: FDA-Public Use
  Company Number: None

PATIENT
  Age: 43 Year
  Sex: Female
  Weight: 78.02 kg

DRUGS (2)
  1. BAMLANIVIMAB\ETESEVIMAB [Suspect]
     Active Substance: BAMLANIVIMAB\ETESEVIMAB
  2. BAMLANIVIMAB\ETESEVIMAB [Concomitant]
     Active Substance: BAMLANIVIMAB\ETESEVIMAB
     Dates: start: 20211230, end: 20211230

REACTIONS (5)
  - Infusion related reaction [None]
  - Nausea [None]
  - Chest discomfort [None]
  - Dyspnoea [None]
  - Muscle spasms [None]

NARRATIVE: CASE EVENT DATE: 20211230
